FAERS Safety Report 5394906-7 (Version None)
Quarter: 2007Q3

REPORT INFORMATION
  Report Type: 
  Country: None (occurrence: None)
  Receive Date: 20070720
  Receipt Date: 20070710
  Transmission Date: 20080115
  Serious: Yes (Hospitalization)
  Sender: FDA-Public Use
  Company Number: 2007AL002793

PATIENT
  Age: 59 Year
  Sex: Male

DRUGS (5)
  1. HYDROCORTISONE 2.5% CREAM [Suspect]
  2. MYCOPHENOLATE MOFETIL [Concomitant]
  3. DACLIZUMAB [Concomitant]
  4. TACROLIMUS [Concomitant]
  5. PREDNISOLONE [Concomitant]

REACTIONS (1)
  - PERITONITIS SCLEROSING [None]
